FAERS Safety Report 13045479 (Version 1)
Quarter: 2016Q4

REPORT INFORMATION
  Report Type: Report from Study
  Country: BE (occurrence: BE)
  Receive Date: 20161220
  Receipt Date: 20161220
  Transmission Date: 20170207
  Serious: Yes (Hospitalization, Other)
  Sender: FDA-Public Use
  Company Number: BE-BAYER-2015-008383

PATIENT
  Age: 73 Year
  Sex: Female

DRUGS (10)
  1. NEXAVAR [Suspect]
     Active Substance: SORAFENIB
     Indication: RENAL CELL CARCINOMA
     Dosage: 200 MG, QD
     Route: 048
     Dates: end: 20150701
  2. FURADANTINE [Concomitant]
     Active Substance: NITROFURANTOIN
     Dosage: 100 MG, UNK
  3. NEXAVAR [Suspect]
     Active Substance: SORAFENIB
     Indication: RENAL CELL CARCINOMA
     Dosage: DAILY DOSE 400 MG
     Route: 048
     Dates: start: 20140929
  4. BISOPROLOL [Concomitant]
     Active Substance: BISOPROLOL
  5. ULTRA-MG [Concomitant]
     Active Substance: MAGNESIUM GLUCONATE
     Dosage: 3 G, UNK
  6. NEXAVAR [Suspect]
     Active Substance: SORAFENIB
     Indication: RENAL CELL CARCINOMA
     Dosage: 200 MG, QD
     Route: 048
     Dates: start: 20150708
  7. AMLOR [Concomitant]
     Active Substance: AMLODIPINE BESYLATE
     Dosage: 5 MG, UNK
  8. SIMVASTATINE [Concomitant]
     Active Substance: SIMVASTATIN
     Dosage: 20 MG, UNK
  9. ZINGIBER OFFICINALE [Concomitant]
     Active Substance: GINGER
  10. NEXAVAR [Suspect]
     Active Substance: SORAFENIB
     Indication: RENAL CELL CARCINOMA
     Dosage: DAILY DOSE 400 MG
     Route: 048

REACTIONS (74)
  - Decreased appetite [Not Recovered/Not Resolved]
  - Diarrhoea [None]
  - Hypertension [None]
  - Fatigue [Not Recovered/Not Resolved]
  - Decreased appetite [Not Recovered/Not Resolved]
  - Diarrhoea [None]
  - Diarrhoea [None]
  - Diarrhoea [None]
  - Diarrhoea [None]
  - Weight decreased [Not Recovered/Not Resolved]
  - Vomiting [None]
  - Diarrhoea [None]
  - Acute myocardial infarction [Unknown]
  - Diarrhoea [None]
  - Diarrhoea [None]
  - Malaise [None]
  - Weight decreased [None]
  - Diarrhoea [None]
  - Diarrhoea [None]
  - Fungal infection [None]
  - Pain of skin [None]
  - Diarrhoea [None]
  - Diarrhoea [Not Recovered/Not Resolved]
  - Diarrhoea [Recovered/Resolved]
  - Palmar-plantar erythrodysaesthesia syndrome [None]
  - Diarrhoea [None]
  - Hypertension [Not Recovered/Not Resolved]
  - Vomiting [None]
  - Myalgia [None]
  - Photosensitivity reaction [None]
  - Osteoarthritis [Not Recovered/Not Resolved]
  - Vomiting [None]
  - Fatigue [None]
  - Weight decreased [None]
  - Haematemesis [None]
  - Iron deficiency [None]
  - Alopecia [Not Recovered/Not Resolved]
  - Diarrhoea [None]
  - Oropharyngeal pain [None]
  - Diarrhoea [None]
  - Musculoskeletal pain [None]
  - Diarrhoea [None]
  - Fatigue [Not Recovered/Not Resolved]
  - Alopecia [Unknown]
  - Urinary tract infection [Recovering/Resolving]
  - Dizziness [None]
  - Weight decreased [Not Recovered/Not Resolved]
  - Rash [None]
  - Rash [None]
  - Hypertension [None]
  - Pruritus [None]
  - Myalgia [None]
  - Diarrhoea [None]
  - Headache [None]
  - Decreased appetite [None]
  - Headache [Not Recovered/Not Resolved]
  - Vomiting [None]
  - Decreased appetite [None]
  - Tooth loss [Recovering/Resolving]
  - Chest discomfort [None]
  - Skin ulcer [None]
  - Diarrhoea [None]
  - Cystitis [Not Recovered/Not Resolved]
  - Influenza [None]
  - Nausea [None]
  - Chromaturia [None]
  - Diarrhoea [None]
  - Diarrhoea [None]
  - Palmar-plantar erythrodysaesthesia syndrome [None]
  - Diarrhoea [None]
  - Pruritus [None]
  - Diarrhoea [Not Recovered/Not Resolved]
  - Dysphonia [None]
  - Disorientation [None]

NARRATIVE: CASE EVENT DATE: 20150112
